FAERS Safety Report 6734751-0 (Version None)
Quarter: 2010Q2

REPORT INFORMATION
  Report Type: 
  Country: None (occurrence: None)
  Receive Date: 20100519
  Receipt Date: 20100519
  Transmission Date: 20101027
  Serious: No
  Sender: FDA-Public Use
  Company Number: None

PATIENT
  Sex: Female
  Weight: 127.0072 kg

DRUGS (1)
  1. NEXIUM [Suspect]

REACTIONS (2)
  - ABDOMINAL PAIN [None]
  - ABDOMINAL RIGIDITY [None]
